FAERS Safety Report 19470289 (Version 1)
Quarter: 2021Q2

REPORT INFORMATION
  Report Type: Spontaneous
  Country: CN (occurrence: CN)
  Receive Date: 20210628
  Receipt Date: 20210628
  Transmission Date: 20210717
  Serious: Yes (Hospitalization)
  Sender: FDA-Public Use
  Company Number: CN-PFIZER INC-2021738825

PATIENT
  Age: 48 Year
  Sex: Male
  Weight: 97.5 kg

DRUGS (4)
  1. CYTOSAR [Suspect]
     Active Substance: CYTARABINE
     Dosage: 4 G, 2X/DAY
     Route: 041
     Dates: start: 20210521, end: 20210523
  2. CYTOSAR [Suspect]
     Active Substance: CYTARABINE
     Indication: ACUTE MYELOID LEUKAEMIA
     Dosage: 0.5 G, 1X/DAY
     Route: 037
     Dates: start: 20210519, end: 20210519
  3. CYTOSAR [Suspect]
     Active Substance: CYTARABINE
     Dosage: 2 G, 2X/DAY
     Route: 041
     Dates: start: 20210520, end: 20210521
  4. METHOTREXATE. [Suspect]
     Active Substance: METHOTREXATE
     Indication: ACUTE MYELOID LEUKAEMIA
     Dosage: 5 ML, 1X/DAY
     Route: 037
     Dates: start: 20210519, end: 20210519

REACTIONS (1)
  - Myelosuppression [Not Recovered/Not Resolved]

NARRATIVE: CASE EVENT DATE: 20210527
